FAERS Safety Report 11860934 (Version 2)
Quarter: 2016Q1

REPORT INFORMATION
  Report Type: Spontaneous
  Country: IT (occurrence: IT)
  Receive Date: 20151222
  Receipt Date: 20160113
  Transmission Date: 20160526
  Serious: Yes (Other)
  Sender: FDA-Public Use
  Company Number: IT-FRESENIUS KABI-FK201506761

PATIENT
  Age: 31 Year
  Sex: Female

DRUGS (1)
  1. BLEOMYCIN [Suspect]
     Active Substance: BLEOMYCIN SULFATE
     Indication: DERMATOFIBROSARCOMA PROTUBERANS
     Route: 042

REACTIONS (3)
  - Skin necrosis [Unknown]
  - Contusion [Unknown]
  - Oedema [Unknown]
